FAERS Safety Report 18655654 (Version 1)
Quarter: 2020Q4

REPORT INFORMATION
  Report Type: Spontaneous
  Country: DK (occurrence: DK)
  Receive Date: 20201223
  Receipt Date: 20201223
  Transmission Date: 20210114
  Serious: Yes (Hospitalization)
  Sender: FDA-Public Use
  Company Number: DK-CURIUM-201000654

PATIENT
  Age: 51 Year
  Sex: Male
  Weight: 105 kg

DRUGS (7)
  1. CAPTOPRIL. [Concomitant]
     Active Substance: CAPTOPRIL
     Indication: RENAL SCAN
     Dates: start: 20020326, end: 20020326
  2. TECHNESCAN MAG3 [Suspect]
     Active Substance: TECHNETIUM TC-99M TIATIDE
     Indication: HYPERTENSION
     Dosage: UNK
     Dates: start: 20020326, end: 20020326
  3. CALCIUM-SANDOZ [Concomitant]
     Active Substance: CALCIUM
     Indication: HYPOPARATHYROIDISM
     Route: 048
  4. TECHNESCAN MAG3 [Suspect]
     Active Substance: TECHNETIUM TC-99M TIATIDE
     Indication: HYPERTENSION
     Dosage: UNK
     Dates: start: 20020301, end: 20020301
  5. METOPROLOL TARTRATE. [Concomitant]
     Active Substance: METOPROLOL TARTRATE
     Indication: HYPERTENSION
     Route: 048
  6. ETALPHA [Concomitant]
     Active Substance: ALFACALCIDOL
     Indication: HYPOPARATHYROIDISM
     Dosage: 1 MICROGRAM(S)
     Route: 048
  7. PHYSIOTENS [Concomitant]
     Active Substance: MOXONIDINE
     Indication: HYPERTENSION
     Route: 048
     Dates: start: 20020221

REACTIONS (5)
  - Pyrexia [Recovered/Resolved]
  - Diarrhoea [Recovered/Resolved]
  - Leukocyturia [Recovered/Resolved]
  - Type III immune complex mediated reaction [Recovered/Resolved]
  - Vomiting [Recovered/Resolved]

NARRATIVE: CASE EVENT DATE: 20020301
